FAERS Safety Report 18570350 (Version 1)
Quarter: 2020Q4

REPORT INFORMATION
  Report Type: Spontaneous
  Country: TH (occurrence: TH)
  Receive Date: 20201202
  Receipt Date: 20201202
  Transmission Date: 20210114
  Serious: Yes (Other)
  Sender: FDA-Public Use
  Company Number: TH-INCYTE CORPORATION-2020IN012021

PATIENT

DRUGS (15)
  1. JAKAVI [Suspect]
     Active Substance: RUXOLITINIB
     Dosage: 5 (1X2PC)
     Route: 065
     Dates: start: 20200214
  2. JAKAVI [Suspect]
     Active Substance: RUXOLITINIB
     Dosage: 5 (1X2PC)
     Route: 065
     Dates: start: 20200506
  3. JAKAVI [Suspect]
     Active Substance: RUXOLITINIB
     Indication: PRIMARY MYELOFIBROSIS
     Dosage: 20 (1X2 PC)
     Route: 065
     Dates: start: 20190719
  4. JAKAVI [Suspect]
     Active Substance: RUXOLITINIB
     Dosage: 5 (1X2 PC)
     Route: 065
     Dates: start: 20191218, end: 20200122
  5. JAKAVI [Suspect]
     Active Substance: RUXOLITINIB
     Dosage: 5 (1X2PC)
     Route: 065
     Dates: start: 20201026
  6. JAKAVI [Suspect]
     Active Substance: RUXOLITINIB
     Dosage: 5 (1X2PC)
     Route: 065
     Dates: start: 20200410
  7. JAKAVI [Suspect]
     Active Substance: RUXOLITINIB
     Dosage: 10 (1X2 PC)
     Route: 065
     Dates: start: 20190906
  8. JAKAVI [Suspect]
     Active Substance: RUXOLITINIB
     Dosage: 5 (1X2PC)
     Route: 065
     Dates: start: 20200731
  9. JAKAVI [Suspect]
     Active Substance: RUXOLITINIB
     Dosage: 15 (1X2 PC)
     Route: 065
     Dates: start: 20190802
  10. JAKAVI [Suspect]
     Active Substance: RUXOLITINIB
     Dosage: 10 (1X2 PC)
     Route: 065
     Dates: start: 20190815
  11. JAKAVI [Suspect]
     Active Substance: RUXOLITINIB
     Dosage: 10 (1X2PC)
     Route: 065
     Dates: start: 20191118
  12. JAKAVI [Suspect]
     Active Substance: RUXOLITINIB
     Dosage: 5 (1X2PC)
     Route: 065
     Dates: start: 20200605
  13. JAKAVI [Suspect]
     Active Substance: RUXOLITINIB
     Dosage: 0 (1X2 PC)
     Route: 065
     Dates: start: 20190928
  14. JAKAVI [Suspect]
     Active Substance: RUXOLITINIB
     Dosage: 5 (1X2PC)
     Route: 065
     Dates: start: 20200309
  15. JAKAVI [Suspect]
     Active Substance: RUXOLITINIB
     Dosage: 10 (1X2 PC)
     Route: 065
     Dates: start: 20191025

REACTIONS (8)
  - Hepatic steatosis [Unknown]
  - White blood cell count increased [Unknown]
  - Blood lactate dehydrogenase increased [Unknown]
  - Alanine aminotransferase increased [Unknown]
  - Splenomegaly [Unknown]
  - Glomerular filtration rate decreased [Unknown]
  - Aspartate aminotransferase increased [Unknown]
  - Haemoglobin decreased [Unknown]

NARRATIVE: CASE EVENT DATE: 20190802
